FAERS Safety Report 11521511 (Version 1)
Quarter: 2015Q3

REPORT INFORMATION
  Report Type: Spontaneous
  Country: US (occurrence: None)
  Receive Date: 20150917
  Receipt Date: 20150917
  Transmission Date: 20151125
  Serious: No
  Sender: FDA-Public Use
  Company Number: None

PATIENT
  Sex: Female
  Weight: 73.48 kg

DRUGS (1)
  1. GENERIC DURAGESIC [Suspect]
     Active Substance: FENTANYL
     Indication: PAIN
     Dosage: DURAGESIC 75  Q3DAYS  TOPICAL
     Route: 061
     Dates: start: 200007

REACTIONS (1)
  - Rash [None]

NARRATIVE: CASE EVENT DATE: 2007
